FAERS Safety Report 13263494 (Version 1)
Quarter: 2017Q1

REPORT INFORMATION
  Report Type: Spontaneous
  Country: US (occurrence: US)
  Receive Date: 20170222
  Receipt Date: 20170222
  Transmission Date: 20170428
  Serious: Yes (Other)
  Sender: FDA-Public Use
  Company Number: None

PATIENT
  Sex: Female
  Weight: 65.83 kg

DRUGS (1)
  1. LEVOTHYROXINE 125 MCG [Suspect]
     Active Substance: LEVOTHYROXINE SODIUM
     Indication: HYPOTHYROIDISM
     Route: 048
     Dates: start: 19960101, end: 19970102

REACTIONS (2)
  - Therapy non-responder [None]
  - Product substitution issue [None]

NARRATIVE: CASE EVENT DATE: 1996
